FAERS Safety Report 6196365-3 (Version None)
Quarter: 2009Q2

REPORT INFORMATION
  Report Type: 
  Country: None (occurrence: None)
  Receive Date: 20090520
  Receipt Date: 20090515
  Transmission Date: 20091009
  Serious: Yes (Other)
  Sender: FDA-Public Use
  Company Number: CH-WYE-G03683809

PATIENT
  Age: 58 Year
  Sex: Male

DRUGS (8)
  1. EFFEXOR [Suspect]
     Route: 048
     Dates: start: 20090414, end: 20090416
  2. EFFEXOR [Interacting]
     Route: 048
     Dates: start: 20090417
  3. EFFEXOR [Interacting]
     Dosage: DOSE AND FREQUENCY UNKNOWN
  4. OXYCONTIN [Interacting]
     Route: 048
     Dates: start: 20090414, end: 20090421
  5. OXYCONTIN [Interacting]
     Dosage: DOSE AND FREQUENCY UNKNOWN
  6. TRIATEC [Concomitant]
     Route: 048
     Dates: start: 20090414
  7. REMERON [Interacting]
     Route: 048
     Dates: start: 20090414, end: 20090421
  8. REMERON [Interacting]
     Dosage: DOSE AND FREQUENCY UNKNOWN

REACTIONS (3)
  - DRUG INTERACTION [None]
  - TREATMENT NONCOMPLIANCE [None]
  - URINARY RETENTION [None]
